FAERS Safety Report 5213721-8 (Version None)
Quarter: 2007Q1

REPORT INFORMATION
  Report Type: 
  Country: None (occurrence: None)
  Receive Date: 20070119
  Receipt Date: 20070109
  Transmission Date: 20070707
  Serious: Yes (Other)
  Sender: FDA-Public Use
  Company Number: US-PFIZER INC-2007002969

PATIENT
  Sex: Male
  Weight: 81.6 kg

DRUGS (31)
  1. LIPITOR [Suspect]
     Indication: BLOOD CHOLESTEROL INCREASED
  2. GUAIFENEX [Concomitant]
  3. PEPCID AC [Concomitant]
     Indication: DYSPEPSIA
  4. ALL OTHER THERAPEUTIC PRODUCTS [Concomitant]
  5. TRANSFER FACTOR [Concomitant]
  6. MELATONIN [Concomitant]
  7. SELENIUM SULFIDE [Concomitant]
  8. VITAMIN E [Concomitant]
  9. SAW PALMETTO [Concomitant]
  10. NYSTATIN [Concomitant]
  11. VESICARE [Concomitant]
  12. REQUIP [Concomitant]
  13. LASIX [Concomitant]
  14. DEXAMETHASONE [Concomitant]
  15. MINITRAN [Concomitant]
     Indication: CARDIAC DISORDER
  16. NITROQUICK [Concomitant]
     Dosage: FREQ:PRN
  17. MAVIK [Concomitant]
  18. METFORMIN HYDROCHLORIDE [Concomitant]
  19. PLAVIX [Concomitant]
     Indication: ANTICOAGULANT THERAPY
  20. PHENYTOIN SODIUM CAP [Concomitant]
  21. DIFLORASONE [Concomitant]
     Route: 061
  22. ASPIRIN [Concomitant]
  23. MIRALAX [Concomitant]
     Indication: CONSTIPATION
  24. MEGESTROL ACETATE [Concomitant]
  25. BENADRYL [Concomitant]
     Indication: SINUS DISORDER
  26. FLONASE [Concomitant]
  27. PROVERA [Concomitant]
  28. ANDROID [Concomitant]
  29. MAXIVISION [Concomitant]
     Indication: MACULAR DEGENERATION
  30. NEXIUM [Concomitant]
     Indication: GASTROOESOPHAGEAL REFLUX DISEASE
  31. MYLANTA [Concomitant]
     Indication: DYSPEPSIA

REACTIONS (7)
  - BACK PAIN [None]
  - DIABETES MELLITUS [None]
  - LYMPHOMA [None]
  - METASTASES TO CENTRAL NERVOUS SYSTEM [None]
  - METASTASES TO SPINE [None]
  - METASTASIS [None]
  - NEOPLASM [None]
